FAERS Safety Report 5406746-0 (Version None)
Quarter: 2007Q3

REPORT INFORMATION
  Report Type: 
  Country: None (occurrence: None)
  Receive Date: 20070807
  Receipt Date: 20070801
  Transmission Date: 20080115
  Serious: Yes (Other)
  Sender: FDA-Public Use
  Company Number: PHNU2007DE02726

PATIENT
  Age: 25 Year
  Sex: Female

DRUGS (2)
  1. CYCLOSPORINE [Suspect]
     Indication: DERMATITIS ATOPIC
     Dosage: INCREASING DOSAGE
  2. CYCLOSPORINE [Suspect]
     Dosage: 300MG/DAY

REACTIONS (2)
  - MENTAL DISORDER [None]
  - MUSCLE SPASMS [None]
